FAERS Safety Report 8108208-9 (Version None)
Quarter: 2012Q1

REPORT INFORMATION
  Report Type: 
  Country: None (occurrence: None)
  Receive Date: 20120202
  Receipt Date: 20120130
  Transmission Date: 20120608
  Serious: Yes (Hospitalization)
  Sender: FDA-Public Use
  Company Number: US-GLAXOSMITHKLINE-A0963675A

PATIENT
  Age: 64 Year
  Sex: Male

DRUGS (1)
  1. NICODERM CQ [Suspect]
     Indication: SMOKING CESSATION THERAPY
     Route: 062
     Dates: start: 20111201

REACTIONS (10)
  - WOUND [None]
  - EXCORIATION [None]
  - DRUG ADMINISTRATION ERROR [None]
  - THERMAL BURN [None]
  - PAIN OF SKIN [None]
  - APPLICATION SITE REACTION [None]
  - CONDITION AGGRAVATED [None]
  - APPLICATION SITE EROSION [None]
  - APPLICATION SITE SCAR [None]
  - EXPIRED DRUG ADMINISTERED [None]
